FAERS Safety Report 6408006-8 (Version None)
Quarter: 2009Q4

REPORT INFORMATION
  Report Type: 
  Country: None (occurrence: None)
  Receive Date: 20091021
  Receipt Date: 20091014
  Transmission Date: 20100525
  Serious: Yes (Death, Other)
  Sender: FDA-Public Use
  Company Number: US-BIOGENIDEC-2009BI030864

PATIENT
  Age: 50 Year
  Sex: Male

DRUGS (1)
  1. TYSABRI [Suspect]
     Indication: MULTIPLE SCLEROSIS
     Route: 042
     Dates: start: 20070209, end: 20090828

REACTIONS (5)
  - COMPLETED SUICIDE [None]
  - DEPRESSION [None]
  - FAECAL INCONTINENCE [None]
  - SUICIDE ATTEMPT [None]
  - URINARY INCONTINENCE [None]
